FAERS Safety Report 17152173 (Version 1)
Quarter: 2019Q4

REPORT INFORMATION
  Report Type: Report from Study
  Country: BE (occurrence: BE)
  Receive Date: 20191213
  Receipt Date: 20191213
  Transmission Date: 20200122
  Serious: Yes (Death)
  Sender: FDA-Public Use
  Company Number: NVSC2019BE068354

PATIENT
  Sex: Male

DRUGS (1)
  1. ACLASTA [Suspect]
     Active Substance: ZOLEDRONIC ACID
     Indication: OSTEOPOROSIS
     Dosage: 1 DF (5 MG/100 ML)
     Route: 042
     Dates: start: 20181210

REACTIONS (3)
  - Vomiting [Fatal]
  - Pyrexia [Fatal]
  - Influenza like illness [Fatal]

NARRATIVE: CASE EVENT DATE: 20181221
